FAERS Safety Report 10273276 (Version 2)
Quarter: 2014Q3

REPORT INFORMATION
  Report Type: Spontaneous
  Country: FR (occurrence: FR)
  Receive Date: 20140702
  Receipt Date: 20140702
  Transmission Date: 20150326
  Serious: Yes (Death, Other)
  Sender: FDA-Public Use
  Company Number: FR-BAYER-2014-014762

PATIENT
  Age: 66 Year
  Sex: Male

DRUGS (1)
  1. STIVARGA [Suspect]
     Active Substance: REGORAFENIB
     Dosage: 40 MG, QID
     Route: 048
     Dates: start: 20140120

REACTIONS (2)
  - Diarrhoea [Fatal]
  - Lung infection [Fatal]

NARRATIVE: CASE EVENT DATE: 201401
